FAERS Safety Report 7706193-2 (Version None)
Quarter: 2011Q3

REPORT INFORMATION
  Report Type: 
  Country: None (occurrence: None)
  Receive Date: 20110824
  Receipt Date: 20110720
  Transmission Date: 20111222
  Serious: No
  Sender: FDA-Public Use
  Company Number: US-BAYER-2011-064228

PATIENT
  Age: 88 Year
  Sex: Male
  Weight: 82 kg

DRUGS (3)
  1. PREDNISONE [Concomitant]
  2. SYNTHROID [Concomitant]
  3. ALEVE (CAPLET) [Suspect]
     Dosage: UNK
     Route: 048

REACTIONS (1)
  - NO ADVERSE EVENT [None]
